FAERS Safety Report 9417876 (Version 1)
Quarter: 2013Q3

REPORT INFORMATION
  Report Type: Spontaneous
  Country: US (occurrence: US)
  Receive Date: 20130724
  Receipt Date: 20130724
  Transmission Date: 20140515
  Serious: Yes (Other)
  Sender: FDA-Public Use
  Company Number: US-TEVA-420646USA

PATIENT
  Sex: Female

DRUGS (1)
  1. ESTRADIOL W/NORGESTIMATE [Suspect]
     Dosage: TAKEN FOR YEARS

REACTIONS (2)
  - Coeliac disease [Unknown]
  - Urticaria [Unknown]
